FAERS Safety Report 24153792 (Version 1)
Quarter: 2024Q3

REPORT INFORMATION
  Report Type: Spontaneous
  Country: GB (occurrence: GB)
  Receive Date: 20240730
  Receipt Date: 20240730
  Transmission Date: 20241017
  Serious: Yes (Hospitalization)
  Sender: MYLAN
  Company Number: GB-MYLANLABS-2024M1019627

PATIENT
  Sex: Male

DRUGS (2)
  1. CLOZARIL [Suspect]
     Active Substance: CLOZAPINE
     Indication: Schizophrenia
     Dosage: UNK, (START DATE: 30-SEP-2021)
     Route: 048
  2. CLOZARIL [Suspect]
     Active Substance: CLOZAPINE
     Dosage: UNK, (START DATE: 02-JUL-2024)
     Route: 048
     Dates: end: 20240718

REACTIONS (3)
  - Hospitalisation [Unknown]
  - Malaise [Unknown]
  - Tachycardia [Unknown]

NARRATIVE: CASE EVENT DATE: 20210101
